FAERS Safety Report 6531509-2 (Version None)
Quarter: 2010Q1

REPORT INFORMATION
  Report Type: 
  Country: None (occurrence: None)
  Receive Date: 20100108
  Receipt Date: 20091228
  Transmission Date: 20100710
  Serious: Yes (Other)
  Sender: FDA-Public Use
  Company Number: US-SANOFI-AVENTIS-2010SA000355

PATIENT
  Age: 57 Year
  Sex: Female

DRUGS (4)
  1. LANTUS [Suspect]
     Indication: TYPE 2 DIABETES MELLITUS
     Dosage: DOSE:40 UNIT(S)
     Route: 058
     Dates: start: 20030101
  2. LANTUS [Suspect]
     Dosage: DOSE:30 UNIT(S)
     Route: 058
  3. OPTICLICK [Suspect]
     Indication: TYPE 2 DIABETES MELLITUS
     Dates: start: 20030101
  4. ANTIHYPERTENSIVES [Concomitant]

REACTIONS (6)
  - BLOOD GLUCOSE INCREASED [None]
  - GLYCOSYLATED HAEMOGLOBIN INCREASED [None]
  - HEART RATE INCREASED [None]
  - HYPERTENSION [None]
  - SLEEP APNOEA SYNDROME [None]
  - WEIGHT INCREASED [None]
